FAERS Safety Report 16784485 (Version 1)
Quarter: 2019Q3

REPORT INFORMATION
  Report Type: Spontaneous
  Country: CA (occurrence: CA)
  Receive Date: 20190909
  Receipt Date: 20190909
  Transmission Date: 20191005
  Serious: Yes (Other)
  Sender: FDA-Public Use
  Company Number: CA-SA-2019SA249370

PATIENT
  Sex: Female

DRUGS (24)
  1. SULFASALAZINE. [Suspect]
     Active Substance: SULFASALAZINE
     Indication: RHEUMATOID ARTHRITIS
     Dosage: 500 MG, UNK
     Route: 065
  2. HUMIRA [Suspect]
     Active Substance: ADALIMUMAB
     Indication: RHEUMATOID ARTHRITIS
     Dosage: 40 MG, UNK
     Route: 058
  3. SIMPONI [Suspect]
     Active Substance: GOLIMUMAB
     Indication: RHEUMATOID ARTHRITIS
     Dosage: UNK UNK, UNK
     Route: 058
  4. ARAVA [Suspect]
     Active Substance: LEFLUNOMIDE
     Indication: RHEUMATOID ARTHRITIS
     Dosage: UNK UNK, UNK
     Route: 048
  5. FOLIC ACID. [Suspect]
     Active Substance: FOLIC ACID
     Dosage: 5 MG, UNK
     Route: 065
  6. HYDROXYCHLOROQUINE SULFATE. [Suspect]
     Active Substance: HYDROXYCHLOROQUINE SULFATE
     Indication: RHEUMATOID ARTHRITIS
     Dosage: UNK UNK, UNK
     Route: 065
  7. CETIRIZINE HYDROCHLORIDE AND PSEUDOEPHEDRINE HYDROCHLORIDE [Suspect]
     Active Substance: CETIRIZINE HYDROCHLORIDE\PSEUDOEPHEDRINE HYDROCHLORIDE
     Indication: RHEUMATOID ARTHRITIS
     Dosage: UNK UNK, UNK
     Route: 065
  8. CIMZIA [Suspect]
     Active Substance: CERTOLIZUMAB PEGOL
     Indication: RHEUMATOID ARTHRITIS
     Dosage: UNK UNK, UNK
     Route: 058
  9. RITUXAN [Suspect]
     Active Substance: RITUXIMAB
     Indication: RHEUMATOID ARTHRITIS
     Dosage: UNK UNK, UNK
     Route: 042
  10. PREDNISONE. [Suspect]
     Active Substance: PREDNISONE
     Indication: RHEUMATOID ARTHRITIS
     Dosage: UNK UNK, UNK
     Route: 048
  11. METHOTREXATE. [Suspect]
     Active Substance: METHOTREXATE
     Indication: RHEUMATOID ARTHRITIS
     Dosage: UNK UNK, UNK
     Route: 048
  12. ACTEMRA [Suspect]
     Active Substance: TOCILIZUMAB
     Indication: RHEUMATOID ARTHRITIS
     Dosage: UNK UNK, UNK
     Route: 058
  13. REMICADE [Suspect]
     Active Substance: INFLIXIMAB
     Indication: RHEUMATOID ARTHRITIS
     Dosage: UNK UNK, UNK
     Route: 042
  14. DESOXIMETASONE. [Suspect]
     Active Substance: DESOXIMETASONE
     Indication: RHEUMATOID ARTHRITIS
     Dosage: UNK, UNK
     Route: 048
  15. FOLIC ACID. [Suspect]
     Active Substance: FOLIC ACID
     Indication: RHEUMATOID ARTHRITIS
     Dosage: 1 MG, UNK
     Route: 065
  16. CETIRIZINE HYDROCHLORIDE. [Suspect]
     Active Substance: CETIRIZINE HYDROCHLORIDE
     Dosage: UNK UNK, UNK
     Route: 065
  17. ORENCIA [Suspect]
     Active Substance: ABATACEPT
     Route: 042
  18. ENBREL [Suspect]
     Active Substance: ETANERCEPT
     Indication: RHEUMATOID ARTHRITIS
     Dosage: UNK UNK, UNK
     Route: 058
  19. PHTHALYLSULFATHIAZOLE [Suspect]
     Active Substance: PHTHALYLSULFATHIAZOLE
     Indication: RHEUMATOID ARTHRITIS
     Dosage: UNK UNK, UNK
     Route: 065
  20. APO-PREDNISONE [Suspect]
     Active Substance: PREDNISONE
     Dosage: UNK UNK, UNK
     Route: 065
  21. FOSAMAX [Suspect]
     Active Substance: ALENDRONATE SODIUM
     Indication: RHEUMATOID ARTHRITIS
     Dosage: UNK UNK, UNK
     Route: 048
  22. CORTISONE ACETATE. [Suspect]
     Active Substance: CORTISONE ACETATE
     Indication: RHEUMATOID ARTHRITIS
     Dosage: 25 MG, OINTMENT
     Route: 065
  23. ORENCIA [Suspect]
     Active Substance: ABATACEPT
     Indication: RHEUMATOID ARTHRITIS
     Route: 058
  24. PSEUDOEPHEDRINE HYDROCHLORIDE. [Suspect]
     Active Substance: PSEUDOEPHEDRINE HYDROCHLORIDE
     Indication: RHEUMATOID ARTHRITIS
     Dosage: UNK UNK, UNK
     Route: 065

REACTIONS (16)
  - Pain [Not Recovered/Not Resolved]
  - Alopecia [Not Recovered/Not Resolved]
  - Rheumatoid arthritis [Not Recovered/Not Resolved]
  - Product use issue [Not Recovered/Not Resolved]
  - Hand deformity [Not Recovered/Not Resolved]
  - Glossodynia [Not Recovered/Not Resolved]
  - Maternal exposure during pregnancy [Not Recovered/Not Resolved]
  - Abdominal discomfort [Not Recovered/Not Resolved]
  - Fatigue [Not Recovered/Not Resolved]
  - Systemic lupus erythematosus [Not Recovered/Not Resolved]
  - Contraindicated product administered [Not Recovered/Not Resolved]
  - Swelling [Not Recovered/Not Resolved]
  - Wound [Not Recovered/Not Resolved]
  - Drug ineffective [Not Recovered/Not Resolved]
  - Pemphigus [Not Recovered/Not Resolved]
  - Arthropathy [Not Recovered/Not Resolved]
